FAERS Safety Report 9606337 (Version 1)
Quarter: 2013Q4

REPORT INFORMATION
  Report Type: Spontaneous
  Country: US (occurrence: US)
  Receive Date: 20131008
  Receipt Date: 20131008
  Transmission Date: 20140711
  Serious: No
  Sender: FDA-Public Use
  Company Number: US-AMGEN-USASP2013050553

PATIENT
  Age: 65 Year
  Sex: Female

DRUGS (1)
  1. PROLIA [Suspect]
     Indication: OSTEOPENIA
     Dosage: UNK
     Dates: start: 20130524

REACTIONS (9)
  - Malaise [Unknown]
  - Pain [Unknown]
  - Burning sensation [Unknown]
  - Blister [Unknown]
  - Hypoaesthesia [Unknown]
  - Fear [Unknown]
  - Insomnia [Unknown]
  - Cystitis [Unknown]
  - Fatigue [Unknown]
